FAERS Safety Report 14392222 (Version 8)
Quarter: 2020Q4

REPORT INFORMATION
  Report Type: Report from Study
  Country: CA (occurrence: CA)
  Receive Date: 20180116
  Receipt Date: 20201225
  Transmission Date: 20210113
  Serious: Yes (Hospitalization, Other)
  Sender: FDA-Public Use
  Company Number: CA-GLAXOSMITHKLINE-CA2017GSK194752

PATIENT
  Sex: Male

DRUGS (8)
  1. PREDNISONE. [Suspect]
     Active Substance: PREDNISONE
     Indication: PRODUCT USED FOR UNKNOWN INDICATION
     Dosage: UNK
  2. MEPOLIZUMAB [Suspect]
     Active Substance: MEPOLIZUMAB
     Indication: ASTHMA
     Dosage: 100 MG, Z (MONTHLY)
     Route: 042
     Dates: start: 20171114
  3. MEPOLIZUMAB [Suspect]
     Active Substance: MEPOLIZUMAB
     Dosage: 100 MG, Z (MONTHLY)
     Route: 042
  4. BREO ELLIPTA [Suspect]
     Active Substance: FLUTICASONE FUROATE\VILANTEROL TRIFENATATE
     Indication: PRODUCT USED FOR UNKNOWN INDICATION
     Dosage: UNK
  5. MEPOLIZUMAB [Suspect]
     Active Substance: MEPOLIZUMAB
     Dosage: 100 MG, Z (MONTHLY)
  6. ADVAIR HFA [Suspect]
     Active Substance: FLUTICASONE PROPIONATE\SALMETEROL XINAFOATE
     Indication: PRODUCT USED FOR UNKNOWN INDICATION
     Dosage: UNK
  7. VENTOLIN [Suspect]
     Active Substance: ALBUTEROL SULFATE
     Indication: PRODUCT USED FOR UNKNOWN INDICATION
     Dosage: UNK
  8. MEPOLIZUMAB [Suspect]
     Active Substance: MEPOLIZUMAB
     Dosage: 100 MG, Z (MONTHLY)
     Route: 042

REACTIONS (18)
  - Infarction [Unknown]
  - Weight increased [Unknown]
  - Chest pain [Unknown]
  - Chest discomfort [Unknown]
  - Dyspnoea [Recovering/Resolving]
  - Renal disorder [Unknown]
  - Asthma [Recovering/Resolving]
  - Influenza [Unknown]
  - Wheezing [Recovering/Resolving]
  - Therapeutic product effect incomplete [Unknown]
  - Hypertension [Unknown]
  - Loss of personal independence in daily activities [Recovering/Resolving]
  - Cushingoid [Unknown]
  - Diabetes mellitus inadequate control [Unknown]
  - Diabetes mellitus [Unknown]
  - Heart rate increased [Unknown]
  - Osteoporosis [Unknown]
  - Visual impairment [Unknown]
